FAERS Safety Report 15860185 (Version 1)
Quarter: 2019Q1

REPORT INFORMATION
  Report Type: Spontaneous
  Country: US (occurrence: US)
  Receive Date: 20190123
  Receipt Date: 20190123
  Transmission Date: 20190417
  Serious: No
  Sender: FDA-Public Use
  Company Number: US-GALDERMA-US18006466

PATIENT
  Age: 24 Year
  Sex: Female

DRUGS (4)
  1. CAMRESE [Concomitant]
     Active Substance: ETHINYL ESTRADIOL\LEVONORGESTREL
     Indication: PRODUCT USED FOR UNKNOWN INDICATION
     Route: 065
  2. EPIDUO [Suspect]
     Active Substance: ADAPALENE\BENZOYL PEROXIDE
     Indication: ACNE
     Dosage: 0.1/2.5
     Route: 061
     Dates: start: 20180304, end: 20180326
  3. AVEENO [Concomitant]
     Active Substance: DIMETHICONE\HOMOSALATE\OCTINOXATE\OCTISALATE\TITANIUM DIOXIDE
     Indication: PRODUCT USED FOR UNKNOWN INDICATION
     Route: 061
  4. VANCICREAM [Concomitant]
     Indication: PRODUCT USED FOR UNKNOWN INDICATION
     Route: 061

REACTIONS (9)
  - Erythema [Recovered/Resolved]
  - Skin exfoliation [Not Recovered/Not Resolved]
  - Rash papular [Recovered/Resolved]
  - Scab [Recovered/Resolved]
  - Capillary fragility [Recovered/Resolved]
  - Skin burning sensation [Recovered/Resolved]
  - Acne [Recovered/Resolved]
  - Skin discolouration [Not Recovered/Not Resolved]
  - Dermatitis [Recovered/Resolved]

NARRATIVE: CASE EVENT DATE: 20180304
